FAERS Safety Report 5117863-7 (Version None)
Quarter: 2006Q3

REPORT INFORMATION
  Report Type: 
  Country: None (occurrence: None)
  Receive Date: 20060929
  Receipt Date: 20060926
  Transmission Date: 20061208
  Serious: Yes (Disabling, Other)
  Sender: FDA-Public Use
  Company Number: US-MERCK-0609USA07239

PATIENT
  Age: 50 Year
  Sex: Female

DRUGS (4)
  1. FOSAMAX [Suspect]
     Indication: OSTEOPENIA
     Route: 048
     Dates: start: 20030113
  2. PAXIL [Concomitant]
     Route: 065
  3. SOMA [Concomitant]
     Route: 065
  4. LIBRAX [Concomitant]
     Route: 065

REACTIONS (2)
  - TOOTH DISORDER [None]
  - TOOTH LOSS [None]
